FAERS Safety Report 12890759 (Version 2)
Quarter: 2016Q4

REPORT INFORMATION
  Report Type: Spontaneous
  Country: US (occurrence: US)
  Receive Date: 20161027
  Receipt Date: 20161118
  Transmission Date: 20170207
  Serious: Yes (Death, Hospitalization)
  Sender: FDA-Public Use
  Company Number: US-SAOL THERAPEUTICS-2016SAO00912

PATIENT
  Age: 56 Year
  Sex: Female

DRUGS (1)
  1. BACLOFEN. [Suspect]
     Active Substance: BACLOFEN
     Dosage: UNK

REACTIONS (6)
  - Respiratory distress [Fatal]
  - Urinary tract infection [Unknown]
  - Lethargy [Fatal]
  - Aspiration [Fatal]
  - Bronchitis [Unknown]
  - Respiratory depression [Unknown]

NARRATIVE: CASE EVENT DATE: 201609
